FAERS Safety Report 14118235 (Version 2)
Quarter: 2017Q4

REPORT INFORMATION
  Report Type: Report from Study
  Country: US (occurrence: US)
  Receive Date: 20171024
  Receipt Date: 20171025
  Transmission Date: 20180321
  Serious: No
  Sender: FDA-Public Use
  Company Number: US-BRISTOL-MYERS SQUIBB COMPANY-BMS-2017-094441

PATIENT
  Sex: Female
  Weight: 74.83 kg

DRUGS (4)
  1. ZESTRIL [Concomitant]
     Active Substance: LISINOPRIL
     Indication: PRODUCT USED FOR UNKNOWN INDICATION
     Route: 065
  2. APIXABAN [Suspect]
     Active Substance: APIXABAN
     Indication: DEEP VEIN THROMBOSIS
     Dosage: 5 MG, BID
     Route: 048
     Dates: start: 20170923
  3. NORVAC [Concomitant]
     Active Substance: AMLODIPINE BESYLATE
     Indication: PRODUCT USED FOR UNKNOWN INDICATION
     Route: 065
  4. ATIVAN [Concomitant]
     Active Substance: LORAZEPAM
     Indication: PRODUCT USED FOR UNKNOWN INDICATION
     Route: 065

REACTIONS (14)
  - Nervousness [Unknown]
  - Myalgia [Unknown]
  - Arthralgia [Unknown]
  - Headache [Recovered/Resolved]
  - Abdominal discomfort [Recovering/Resolving]
  - Disturbance in attention [Not Recovered/Not Resolved]
  - Nausea [Unknown]
  - Dizziness [Recovering/Resolving]
  - Listless [Unknown]
  - Confusional state [Unknown]
  - Asthenia [Recovering/Resolving]
  - Decreased appetite [Recovering/Resolving]
  - Lip swelling [Not Recovered/Not Resolved]
  - Asthenia [Unknown]
